FAERS Safety Report 6185132-2 (Version None)
Quarter: 2009Q2

REPORT INFORMATION
  Report Type: 
  Country: None (occurrence: None)
  Receive Date: 20090507
  Receipt Date: 20090428
  Transmission Date: 20091009
  Serious: Yes (Other)
  Sender: FDA-Public Use
  Company Number: 1000006091

PATIENT
  Age: 70 Year
  Sex: Female

DRUGS (2)
  1. CITALOPRAM HYDROBROMIDE [Suspect]
     Dates: start: 20081201, end: 20090416
  2. ASPEGIC 1000 [Concomitant]

REACTIONS (1)
  - PUSTULAR PSORIASIS [None]
